FAERS Safety Report 20690632 (Version 1)
Quarter: 2022Q2

REPORT INFORMATION
  Report Type: Spontaneous
  Country: US (occurrence: US)
  Receive Date: 20220408
  Receipt Date: 20220408
  Transmission Date: 20220721
  Serious: Yes (Other)
  Sender: FDA-Public Use
  Company Number: US-BIOGEN-2022BI01108826

PATIENT
  Sex: Female

DRUGS (2)
  1. ADUHELM [Suspect]
     Active Substance: ADUCANUMAB-AVWA
     Indication: Product used for unknown indication
     Route: 065
     Dates: start: 202112, end: 202203
  2. ADUHELM [Suspect]
     Active Substance: ADUCANUMAB-AVWA
     Route: 065

REACTIONS (3)
  - Meningitis [Unknown]
  - Head injury [Unknown]
  - Fall [Recovered/Resolved]
